FAERS Safety Report 7595488-1 (Version None)
Quarter: 2011Q3

REPORT INFORMATION
  Report Type: 
  Country: None (occurrence: None)
  Receive Date: 20110707
  Receipt Date: 20110630
  Transmission Date: 20111222
  Serious: Yes (Hospitalization)
  Sender: FDA-Public Use
  Company Number: US-JNJFOC-20090605296

PATIENT
  Age: 9 Year
  Sex: Female
  Weight: 29.5 kg

DRUGS (14)
  1. INFLIXIMAB [Suspect]
     Indication: CROHN'S DISEASE
     Route: 042
     Dates: start: 20080205
  2. HUMIRA [Concomitant]
  3. ZYRTEC [Concomitant]
  4. FERROUS SULFATE TAB [Concomitant]
  5. INFLIXIMAB [Suspect]
     Route: 042
     Dates: start: 20090114
  6. PREDNISONE [Concomitant]
  7. INFLIXIMAB [Suspect]
     Route: 042
     Dates: start: 20080225
  8. METRONIDAZOLE [Concomitant]
  9. MULTIPLE VITAMIN [Concomitant]
  10. PREVACID [Concomitant]
  11. INFLIXIMAB [Suspect]
     Route: 042
     Dates: start: 20080319
  12. FISH OIL [Concomitant]
  13. 5-AMINOSALICYLIC ACID [Concomitant]
     Route: 048
  14. ENTERAL FEEDING [Concomitant]

REACTIONS (2)
  - CROHN'S DISEASE [None]
  - CRYPTOSPORIDIOSIS INFECTION [None]
